FAERS Safety Report 9333115 (Version 1)
Quarter: 2013Q2

REPORT INFORMATION
  Report Type: Spontaneous
  Country: FR (occurrence: FR)
  Receive Date: 20130606
  Receipt Date: 20130606
  Transmission Date: 20140414
  Serious: Yes (Death)
  Sender: FDA-Public Use
  Company Number: FR-ELI_LILLY_AND_COMPANY-FR201305008198

PATIENT
  Age: 68 Year
  Sex: Female

DRUGS (13)
  1. CYMBALTA [Suspect]
     Indication: DEPRESSION
     Dosage: 30 MG, QD
     Route: 048
     Dates: start: 20130315, end: 20130405
  2. DOGMATIL [Concomitant]
     Dosage: 50 MG, UNK
     Dates: end: 20130405
  3. TEMERIT [Concomitant]
     Dosage: 5 MG, UNK
     Dates: start: 20130315
  4. SPIRIVA [Concomitant]
  5. PARIET [Concomitant]
     Dosage: 20 MG, UNK
  6. CACIT VITAMINE D3 [Concomitant]
  7. CRESTOR [Concomitant]
     Dosage: 10 MG, UNK
  8. XANAX [Concomitant]
     Dosage: 0.25 MG, UNK
  9. DIFFU K [Concomitant]
  10. SPECIAFOLDINE [Concomitant]
     Dosage: 5 MG, UNK
  11. NOCTAMIDE [Concomitant]
     Dosage: 1 MG, UNK
  12. SERETIDE DISKUS [Concomitant]
     Dosage: 250 / 50 UG / DOSE
  13. KARDEGIC [Concomitant]
     Dosage: 75 MG, UNK

REACTIONS (2)
  - Intestinal obstruction [Fatal]
  - Pneumonia aspiration [Fatal]
